FAERS Safety Report 19389661 (Version 1)
Quarter: 2021Q2

REPORT INFORMATION
  Report Type: Spontaneous
  Country: US (occurrence: US)
  Receive Date: 20210607
  Receipt Date: 20210607
  Transmission Date: 20210717
  Serious: Yes (Disabling)
  Sender: FDA-Public Use
  Company Number: None

PATIENT
  Age: 46 Year
  Sex: Female
  Weight: 54 kg

DRUGS (5)
  1. VITAMIN D [Concomitant]
     Active Substance: VITAMIN D NOS
  2. MULTIVITAMIN [Concomitant]
     Active Substance: VITAMINS
  3. KLONOPIN [Suspect]
     Active Substance: CLONAZEPAM
     Indication: INSOMNIA
     Dosage: ?          QUANTITY:1 TABLET(S);?
     Route: 048
     Dates: start: 20110601, end: 20210203
  4. CALCIUM [Concomitant]
     Active Substance: CALCIUM
  5. KLONOPIN [Suspect]
     Active Substance: CLONAZEPAM
     Indication: ANXIETY
     Dosage: ?          QUANTITY:1 TABLET(S);?
     Route: 048
     Dates: start: 20110601, end: 20210203

REACTIONS (13)
  - Insomnia [None]
  - Pain [None]
  - Decreased appetite [None]
  - Panic attack [None]
  - Palpitations [None]
  - Disturbance in attention [None]
  - Speech disorder [None]
  - Night sweats [None]
  - Muscle spasms [None]
  - Body temperature fluctuation [None]
  - Dysgeusia [None]
  - Withdrawal syndrome [None]
  - Muscle tightness [None]

NARRATIVE: CASE EVENT DATE: 20210309
